FAERS Safety Report 9901925 (Version 1)
Quarter: 2014Q1

REPORT INFORMATION
  Report Type: Spontaneous
  Country: RU (occurrence: RU)
  Receive Date: 20140217
  Receipt Date: 20140217
  Transmission Date: 20141002
  Serious: Yes (Other)
  Sender: FDA-Public Use
  Company Number: RU-VIIV HEALTHCARE LIMITED-B0969888A

PATIENT
  Sex: Male

DRUGS (7)
  1. COMBIVIR [Suspect]
     Indication: HIV INFECTION
     Route: 065
  2. KIVEXA [Suspect]
     Indication: HIV INFECTION
     Route: 065
  3. STOCRIN [Suspect]
     Indication: HIV INFECTION
     Route: 065
  4. STAVUDINE [Suspect]
     Indication: HIV INFECTION
     Route: 065
  5. INTELENCE [Suspect]
     Indication: HIV INFECTION
     Route: 065
  6. CREATINE [Concomitant]
  7. L-CARNITINE [Concomitant]

REACTIONS (7)
  - Lipodystrophy acquired [Unknown]
  - Alanine aminotransferase increased [Unknown]
  - Aspartate aminotransferase increased [Unknown]
  - Lipids [Unknown]
  - Amylase increased [Unknown]
  - Blood alkaline phosphatase increased [Unknown]
  - Myopathy [Unknown]
